FAERS Safety Report 17263118 (Version 1)
Quarter: 2020Q1

REPORT INFORMATION
  Report Type: Spontaneous
  Country: US (occurrence: US)
  Receive Date: 20200110
  Receipt Date: 20200110
  Transmission Date: 20200409
  Serious: Yes (Other)
  Sender: FDA-Public Use
  Company Number: None

PATIENT
  Age: 30 Year
  Sex: Female
  Weight: 130.6 kg

DRUGS (1)
  1. GLATIRAMER ACETATE. [Suspect]
     Active Substance: GLATIRAMER ACETATE
     Indication: MULTIPLE SCLEROSIS
     Dosage: ?          OTHER FREQUENCY:THREE TIMES WEEKLY;?
     Dates: start: 20190621, end: 20190808

REACTIONS (5)
  - Injection site mass [None]
  - Injection site swelling [None]
  - Injection site reaction [None]
  - Product substitution issue [None]
  - Injection site pain [None]

NARRATIVE: CASE EVENT DATE: 20190716
